FAERS Safety Report 4554586-7 (Version None)
Quarter: 2005Q1

REPORT INFORMATION
  Report Type: 
  Country: None (occurrence: None)
  Receive Date: 20050114
  Receipt Date: 20040428
  Transmission Date: 20050727
  Serious: Yes (Hospitalization)
  Sender: FDA-Public Use
  Company Number: GXKR2004US00550

PATIENT
  Age: 30 Year
  Sex: Female

DRUGS (4)
  1. CAPTOPRIL [Suspect]
     Indication: HYPERTENSIVE CRISIS
  2. TRIAMTERENE + HYDROCHLOROTHIAZIDE (NGX) (HYDROCHLOROTHIAZIDE, TRIAMTER [Suspect]
     Indication: HYPERTENSIVE CRISIS
  3. NIFEDIPINE [Suspect]
     Indication: HYPERTENSIVE CRISIS
  4. HYDRALAZINE (NGX) (HYDRALAZINE) [Suspect]
     Indication: HYPERTENSIVE CRISIS

REACTIONS (1)
  - RETINAL ISCHAEMIA [None]
